FAERS Safety Report 10667506 (Version 3)
Quarter: 2015Q1

REPORT INFORMATION
  Report Type: Spontaneous
  Country: CH (occurrence: None)
  Receive Date: 20141218
  Receipt Date: 20150202
  Transmission Date: 20150720
  Serious: Yes (Hospitalization)
  Sender: FDA-Public Use
  Company Number: 20140807

PATIENT
  Age: 45 Year
  Sex: Female
  Weight: 67 kg

DRUGS (2)
  1. VENOFER [Suspect]
     Active Substance: IRON SUCROSE
     Indication: ANAEMIA
     Route: 041
     Dates: start: 20140916, end: 20140916
  2. RINGER^S SOLUTION [Suspect]
     Active Substance: RINGER^S SOLUTION
     Indication: INFUSION
     Dosage: 500 ML (1 IN 1 TOTAL), INTRAVENOUS DRIP
     Route: 041
     Dates: start: 20140916, end: 20140916

REACTIONS (7)
  - Dyspnoea [None]
  - Pain [None]
  - Myalgia [None]
  - Pyrexia [None]
  - Chest discomfort [None]
  - Chills [None]
  - White blood cell count increased [None]

NARRATIVE: CASE EVENT DATE: 20140916
